FAERS Safety Report 9881824 (Version 2)
Quarter: 2014Q2

REPORT INFORMATION
  Report Type: Spontaneous
  Country: JP (occurrence: JP)
  Receive Date: 20140207
  Receipt Date: 20140408
  Transmission Date: 20141212
  Serious: Yes (Death, Other)
  Sender: FDA-Public Use
  Company Number: PHHY2014JP014711

PATIENT
  Age: 85 Year
  Sex: Male

DRUGS (13)
  1. ULTIBRO BREEZHALER [Suspect]
     Indication: EMPHYSEMA
     Route: 055
     Dates: start: 20140108
  2. ULTIBRO BREEZHALER [Suspect]
     Indication: OFF LABEL USE
  3. ONBREZ [Suspect]
     Indication: EMPHYSEMA
     Dosage: 150 UG, UNK
     Route: 055
     Dates: start: 2013, end: 201401
  4. HALFDIGOXIN [Suspect]
     Indication: CARDIAC FAILURE CHRONIC
     Dosage: 0.125 MG, QD
     Route: 048
     Dates: start: 20111201
  5. KLARICID [Suspect]
     Indication: EMPHYSEMA
     Dosage: 400 MG, QD
     Route: 048
     Dates: start: 20111201
  6. VASOLAN [Suspect]
     Indication: CARDIAC FAILURE CHRONIC
     Dosage: 80 MG, QD
     Route: 048
     Dates: start: 20111201
  7. PREDNISOLONE [Concomitant]
     Indication: ASTHMA
     Dosage: 0.5 MG, UNK
     Route: 048
     Dates: start: 20111201
  8. LASIX [Concomitant]
     Indication: CARDIAC FAILURE CHRONIC
     Dosage: 20 MG, UNK
     Route: 048
     Dates: start: 20111201
  9. ONON [Concomitant]
     Indication: ASTHMA
     Dosage: 225 MG, UNK
     Route: 048
  10. ENTERONON-R [Concomitant]
     Indication: CONSTIPATION
     Dosage: 2 G, UNK
     Route: 048
     Dates: start: 20111201
  11. MUCODYNE [Concomitant]
     Indication: EMPHYSEMA
     Dosage: 1500 MG, UNK
     Route: 048
     Dates: start: 20111201
  12. ACTONEL [Concomitant]
     Indication: OSTEOPOROSIS
     Dosage: 17.5 MG, UNK
     Route: 048
     Dates: start: 20111217
  13. MAGLAX [Concomitant]
     Indication: CONSTIPATION
     Dosage: 330 MG, UNK
     Route: 048
     Dates: start: 20111201

REACTIONS (3)
  - Sudden death [Fatal]
  - Emphysema [Unknown]
  - Disease progression [Unknown]
